FAERS Safety Report 6901005-9 (Version None)
Quarter: 2010Q3

REPORT INFORMATION
  Report Type: 
  Country: None (occurrence: None)
  Receive Date: 20100803
  Receipt Date: 20100722
  Transmission Date: 20110219
  Serious: Yes (Other)
  Sender: FDA-Public Use
  Company Number: US-WYE-H15739110

PATIENT
  Sex: Female
  Weight: 56.75 kg

DRUGS (2)
  1. PRISTIQ [Suspect]
     Indication: ANXIETY
     Dosage: UNKNOWN
     Route: 048
     Dates: start: 20090101, end: 20100617
  2. KEFLEX [Concomitant]
     Indication: SKIN INFECTION
     Dosage: UNKNOWN

REACTIONS (1)
  - MIXED LIVER INJURY [None]
